FAERS Safety Report 9148373 (Version 1)
Quarter: 2013Q1

REPORT INFORMATION
  Report Type: Spontaneous
  Country: US (occurrence: US)
  Receive Date: 20130308
  Receipt Date: 20130308
  Transmission Date: 20140127
  Serious: No
  Sender: FDA-Public Use
  Company Number: US-ENDO PHARMACEUTICALS INC.-ENDC20130002

PATIENT
  Sex: Female

DRUGS (3)
  1. ENDOCET [Suspect]
     Indication: PRODUCT USED FOR UNKNOWN INDICATION
     Dosage: UNKNOWN
     Route: 048
     Dates: start: 2004, end: 2012
  2. ENDOCET [Suspect]
     Dosage: UNKNOWN
     Route: 048
     Dates: start: 2012, end: 201206
  3. ENDOCET [Suspect]
     Dosage: UNKNOWN
     Route: 048
     Dates: start: 201206

REACTIONS (2)
  - Fall [Unknown]
  - Dizziness [Unknown]
